FAERS Safety Report 18972989 (Version 1)
Quarter: 2021Q1

REPORT INFORMATION
  Report Type: Spontaneous
  Country: US (occurrence: US)
  Receive Date: 20210305
  Receipt Date: 20210305
  Transmission Date: 20210420
  Serious: Yes (Other)
  Sender: FDA-Public Use
  Company Number: US-BAUSCH-BL-2021-006483

PATIENT
  Age: 65 Year
  Sex: Male

DRUGS (2)
  1. ADVANCED EYE RELIEF/ REDNESS INSTANT RELIEF [Suspect]
     Active Substance: NAPHAZOLINE HYDROCHLORIDE\POLYETHYLENE GLYCOL 300
     Indication: OCULAR HYPERAEMIA
     Dosage: AS NEEDED
     Route: 047
     Dates: start: 202004, end: 202102
  2. ADVANCED EYE RELIEF/ REDNESS INSTANT RELIEF [Suspect]
     Active Substance: NAPHAZOLINE HYDROCHLORIDE\POLYETHYLENE GLYCOL 300
     Indication: EYE LUBRICATION THERAPY

REACTIONS (2)
  - Eye haemorrhage [Unknown]
  - Expired product administered [Unknown]

NARRATIVE: CASE EVENT DATE: 2020
